FAERS Safety Report 8381554-X (Version None)
Quarter: 2012Q2

REPORT INFORMATION
  Report Type: 
  Country: None (occurrence: None)
  Receive Date: 20120523
  Receipt Date: 20120508
  Transmission Date: 20120825
  Serious: Yes (Other)
  Sender: FDA-Public Use
  Company Number: CHPA2012US010793

PATIENT
  Age: 82 Year
  Sex: Female

DRUGS (3)
  1. DRUG THERAPY NOS [Concomitant]
     Indication: DIABETES MELLITUS
  2. EXCEDRIN EXTRA STRENGTH TABLETS [Suspect]
     Indication: ASTHENIA
     Dosage: 2 DF, EVERY 2-3 DAYS
     Route: 048
  3. CORTISONE ACETATE [Suspect]
     Dosage: UNK, UNK

REACTIONS (9)
  - THERAPEUTIC RESPONSE UNEXPECTED [None]
  - ANKLE FRACTURE [None]
  - CONCOMITANT DISEASE AGGRAVATED [None]
  - INSOMNIA [None]
  - BLOOD GLUCOSE INCREASED [None]
  - OFF LABEL USE [None]
  - FALL [None]
  - DEPRESSED MOOD [None]
  - LOSS OF CONSCIOUSNESS [None]
